FAERS Safety Report 4364990-8 (Version None)
Quarter: 2004Q2

REPORT INFORMATION
  Report Type: 
  Country: None (occurrence: None)
  Receive Date: 20040521
  Receipt Date: 20040505
  Transmission Date: 20050107
  Serious: Yes (Hospitalization)
  Sender: FDA-Public Use
  Company Number: FR_040404006

PATIENT
  Age: 60 Year
  Sex: Male

DRUGS (3)
  1. GEMZAR [Suspect]
     Indication: PANCREATIC CARCINOMA
     Dosage: 500 MG/M2/1 WEEK
     Dates: start: 20031104
  2. HUMALOG MIX 50 (INSULIN) [Concomitant]
  3. HUMALOG MIX 25 [Concomitant]

REACTIONS (9)
  - BILIARY DILATATION [None]
  - C-REACTIVE PROTEIN INCREASED [None]
  - CHOLANGITIS [None]
  - CHOLESTASIS [None]
  - ESCHERICHIA SEPSIS [None]
  - MALIGNANT NEOPLASM PROGRESSION [None]
  - METASTASES TO LIVER [None]
  - PYREXIA [None]
  - VOMITING [None]
